FAERS Safety Report 6497801-5 (Version None)
Quarter: 2009Q4

REPORT INFORMATION
  Report Type: 
  Country: None (occurrence: None)
  Receive Date: 20091215
  Receipt Date: 20091202
  Transmission Date: 20100525
  Serious: Yes (Other)
  Sender: FDA-Public Use
  Company Number: US-ELI_LILLY_AND_COMPANY-US200912001024

PATIENT
  Sex: Male

DRUGS (12)
  1. CIALIS [Suspect]
     Indication: ERECTILE DYSFUNCTION
     Dosage: UNK, DAILY (1/D)
     Route: 065
     Dates: start: 20030101
  2. CIALIS [Interacting]
     Dosage: UNK, OTHER
     Route: 065
     Dates: start: 20030101
  3. STRIANT [Interacting]
     Dosage: UNK, UNKNOWN
     Route: 065
  4. JANUVIA [Concomitant]
     Dosage: 100 MG, UNKNOWN
     Route: 065
  5. GLUCOTROL [Concomitant]
     Dosage: 5 MG, UNKNOWN
     Route: 065
  6. GLUCOPHAGE [Concomitant]
     Dosage: 1000 MG, 2/D
     Route: 065
  7. PREVACID [Concomitant]
     Dosage: UNK, DAILY (1/D)
     Route: 065
  8. LOTENSIN [Concomitant]
     Indication: BLOOD PRESSURE
     Dosage: 40 MG, DAILY (1/D)
     Route: 065
  9. NORVASC [Concomitant]
     Dosage: 5 MG, DAILY (1/D)
     Route: 065
  10. ZOCOR [Concomitant]
     Indication: BLOOD CHOLESTEROL
     Dosage: 40 MG, UNKNOWN
     Route: 065
  11. COREG [Concomitant]
     Indication: CARDIAC DISORDER
     Dosage: 25 MG, 2/D
     Route: 065
  12. BACLOFEN [Concomitant]
     Dosage: 15 MG, UNKNOWN
     Route: 065

REACTIONS (5)
  - DRUG EFFECT INCREASED [None]
  - DRUG INTERACTION [None]
  - INTENTIONAL DRUG MISUSE [None]
  - NARCOLEPSY [None]
  - UPPER MOTOR NEURONE LESION [None]
